FAERS Safety Report 21683977 (Version 1)
Quarter: 2022Q4

REPORT INFORMATION
  Report Type: Report from Study
  Country: US (occurrence: None)
  Receive Date: 20221205
  Receipt Date: 20221205
  Transmission Date: 20230113
  Serious: Yes (Life-Threatening, Hospitalization)
  Sender: FDA-Public Use
  Company Number: 2022A394849

PATIENT
  Age: 166 Month
  Sex: Female
  Weight: 51.9 kg

DRUGS (1)
  1. SELUMETINIB [Suspect]
     Active Substance: SELUMETINIB
     Indication: Neurofibroma
     Route: 048
     Dates: start: 20221026, end: 20221115

REACTIONS (4)
  - Respiratory failure [Unknown]
  - Acute kidney injury [Unknown]
  - Aspartate aminotransferase increased [Unknown]
  - Otitis media [Unknown]

NARRATIVE: CASE EVENT DATE: 20221116
